FAERS Safety Report 23862750 (Version 5)
Quarter: 2024Q3

REPORT INFORMATION
  Report Type: Spontaneous
  Country: TN (occurrence: TN)
  Receive Date: 20240516
  Receipt Date: 20240924
  Transmission Date: 20241017
  Serious: Yes (Hospitalization, Other)
  Sender: SANOFI AVENTIS
  Company Number: TN-SA-SAC20240509000670

PATIENT
  Age: 53 Year
  Sex: Female

DRUGS (2)
  1. LANTUS [Suspect]
     Active Substance: INSULIN GLARGINE
     Indication: Type 1 diabetes mellitus
     Dosage: 20 IU, QD
     Route: 065
     Dates: start: 2017
  2. APIDRA [Concomitant]
     Active Substance: INSULIN GLULISINE
     Dosage: 6 U, TID
     Route: 065

REACTIONS (6)
  - Diabetic ketoacidosis [Recovered/Resolved]
  - Condition aggravated [Recovered/Resolved]
  - Vomiting [Unknown]
  - Blood glucose increased [Recovering/Resolving]
  - Sensory disturbance [Unknown]
  - Glycosylated haemoglobin increased [Recovering/Resolving]

NARRATIVE: CASE EVENT DATE: 20240101
